FAERS Safety Report 4624299-1 (Version None)
Quarter: 2005Q1

REPORT INFORMATION
  Report Type: 
  Country: None (occurrence: None)
  Receive Date: 20050331
  Receipt Date: 20030721
  Transmission Date: 20050727
  Serious: Yes (Death)
  Sender: FDA-Public Use
  Company Number: US-ABBOTT-03P-163-0225931-00

PATIENT
  Age: 46 Year
  Sex: Male
  Weight: 77.634 kg

DRUGS (1)
  1. HYDROCODONE [Suspect]
     Dates: end: 20020101

REACTIONS (4)
  - DRUG TOXICITY [None]
  - EMPHYSEMA [None]
  - HYPERTROPHIC CARDIOMYOPATHY [None]
  - VENTRICULAR HYPERTROPHY [None]
